FAERS Safety Report 6402137-4 (Version None)
Quarter: 2009Q4

REPORT INFORMATION
  Report Type: 
  Country: None (occurrence: None)
  Receive Date: 20091014
  Receipt Date: 20091014
  Transmission Date: 20100525
  Serious: Yes (Hospitalization)
  Sender: FDA-Public Use
  Company Number: None

PATIENT
  Sex: Female
  Weight: 54.4316 kg

DRUGS (1)
  1. TRAMADOL HCL [Suspect]
     Indication: ARTHRALGIA
     Dosage: 1 TABLET BY MOUTH EVERY 6 HOURS
     Dates: start: 20090929

REACTIONS (6)
  - DYSKINESIA [None]
  - NAUSEA [None]
  - PRURITUS [None]
  - SPEECH DISORDER [None]
  - TREMOR [None]
  - VOMITING [None]
